APPROVED DRUG PRODUCT: BUPRENORPHINE HYDROCHLORIDE
Active Ingredient: BUPRENORPHINE HYDROCHLORIDE
Strength: EQ 8MG BASE
Dosage Form/Route: TABLET;SUBLINGUAL
Application: A218473 | Product #002 | TE Code: AB
Applicant: SPECGX LLC
Approved: Dec 10, 2025 | RLD: No | RS: No | Type: RX